FAERS Safety Report 13263465 (Version 2)
Quarter: 2017Q1

REPORT INFORMATION
  Report Type: Spontaneous
  Country: CA (occurrence: CA)
  Receive Date: 20170223
  Receipt Date: 20170329
  Transmission Date: 20170428
  Serious: Yes (Other)
  Sender: FDA-Public Use
  Company Number: CA-HIKMA PHARMACEUTICALS CO. LTD-2017CA002081

PATIENT

DRUGS (6)
  1. ADVAIR UNSPEC [Concomitant]
     Dosage: 500 UG, UNK
  2. PREGABALIN. [Concomitant]
     Active Substance: PREGABALIN
     Dosage: 375 MG, DAILY
  3. SPIRIVA [Concomitant]
     Active Substance: TIOTROPIUM BROMIDE MONOHYDRATE
     Dosage: 18 UG,UNK
  4. INFLECTRA [Suspect]
     Active Substance: INFLIXIMAB-DYYB
     Indication: ANKYLOSING SPONDYLITIS
     Dosage: 355 MG, CYCLIC (EVERY 2, 6 WEEKS, THEN EVERY 4 WEEKS FOR 6 MONTHS)
     Route: 042
     Dates: start: 20170131, end: 20170215
  5. RISEDRONATE [Concomitant]
     Active Substance: RISEDRONATE SODIUM
     Dosage: 35 MG, WEEKLY
  6. VIMOVO [Concomitant]
     Active Substance: ESOMEPRAZOLE MAGNESIUM\NAPROXEN
     Dosage: UNK

REACTIONS (4)
  - Off label use [Unknown]
  - Lung infection [Not Recovered/Not Resolved]
  - Respiratory tract infection [Not Recovered/Not Resolved]
  - Malaise [Not Recovered/Not Resolved]

NARRATIVE: CASE EVENT DATE: 20170220
